FAERS Safety Report 12906685 (Version 1)
Quarter: 2016Q4

REPORT INFORMATION
  Report Type: Spontaneous
  Country: US (occurrence: US)
  Receive Date: 20161103
  Receipt Date: 20161103
  Transmission Date: 20170207
  Serious: No
  Sender: FDA-Public Use
  Company Number: US-MYLANLABS-2016M1029784

PATIENT
  Sex: Female

DRUGS (1)
  1. AUBRA [Suspect]
     Active Substance: ETHINYL ESTRADIOL\LEVONORGESTREL
     Dosage: UNK

REACTIONS (2)
  - Drug dose omission [Not Recovered/Not Resolved]
  - Menorrhagia [Not Recovered/Not Resolved]
